FAERS Safety Report 17866595 (Version 1)
Quarter: 2020Q2

REPORT INFORMATION
  Report Type: Spontaneous
  Country: US (occurrence: US)
  Receive Date: 20200605
  Receipt Date: 20200605
  Transmission Date: 20200714
  Serious: No
  Sender: FDA-Public Use
  Company Number: US-SA-2020SA140335

PATIENT

DRUGS (1)
  1. FERRLECIT [Suspect]
     Active Substance: SODIUM FERRIC GLUCONATE COMPLEX
     Route: 042

REACTIONS (8)
  - Product quality issue [Unknown]
  - Condition aggravated [Unknown]
  - Hypersensitivity [Unknown]
  - Dyspnoea [Unknown]
  - Nausea [Unknown]
  - Chest pain [Unknown]
  - Swelling [Unknown]
  - Vomiting [Unknown]

NARRATIVE: CASE EVENT DATE: 20200526
